FAERS Safety Report 18308759 (Version 1)
Quarter: 2020Q3

REPORT INFORMATION
  Report Type: Spontaneous
  Country: DE (occurrence: DE)
  Receive Date: 20200924
  Receipt Date: 20200924
  Transmission Date: 20201103
  Serious: Yes (Other)
  Sender: FDA-Public Use
  Company Number: DE-MYLANLABS-2020M1080501

PATIENT
  Age: 77 Year
  Sex: Male
  Weight: 56 kg

DRUGS (6)
  1. MEROPENEM. [Concomitant]
     Active Substance: MEROPENEM
     Indication: BACTERIAL SEPSIS
     Dosage: 3 GRAM, QD
     Route: 042
  2. URSODEOXYCHOLIC ACID [Concomitant]
     Active Substance: URSODIOL
     Indication: CHOLESTASIS
     Dosage: 500 MILLIGRAM, QD
     Route: 048
  3. KALINOR RETARD P [Concomitant]
     Active Substance: POTASSIUM CHLORIDE
     Indication: TACHYCARDIA
     Dosage: UNK
  4. PREDNISOLON                        /00016201/ [Concomitant]
     Active Substance: PREDNISOLONE
     Indication: POLYMYALGIA RHEUMATICA
     Dosage: 2 MILLIGRAM, QD
     Route: 048
  5. PANTOZOL [Concomitant]
     Active Substance: PANTOPRAZOLE SODIUM
     Dosage: 40 MILLIGRAM, QD
     Route: 048
  6. CASPOFUNGIN [Suspect]
     Active Substance: CASPOFUNGIN
     Indication: CANDIDA INFECTION
     Dosage: 50 MILLIGRAM
     Route: 042

REACTIONS (1)
  - Injection site thrombosis [Recovering/Resolving]

NARRATIVE: CASE EVENT DATE: 20200721
